FAERS Safety Report 10420658 (Version 1)
Quarter: 2014Q3

REPORT INFORMATION
  Report Type: Spontaneous
  Country: US (occurrence: None)
  Receive Date: 20140829
  Receipt Date: 20140829
  Transmission Date: 20150326
  Serious: Yes (Hospitalization, Disabling)
  Sender: FDA-Public Use
  Company Number: None

PATIENT
  Age: 34 Year
  Sex: Male
  Weight: 81.65 kg

DRUGS (1)
  1. CIPROFLOXACIN. [Suspect]
     Active Substance: CIPROFLOXACIN
     Indication: INFECTION
     Dosage: 1X500MG TWICE DAILY TAKEN BY MOUTH
     Route: 048
     Dates: start: 20120620, end: 20120627

REACTIONS (2)
  - Tendon injury [None]
  - Nerve injury [None]

NARRATIVE: CASE EVENT DATE: 20120620
